FAERS Safety Report 24163848 (Version 1)
Quarter: 2024Q3

REPORT INFORMATION
  Report Type: Spontaneous
  Country: US (occurrence: US)
  Receive Date: 20240801
  Receipt Date: 20240801
  Transmission Date: 20241017
  Serious: No
  Sender: ABBVIE
  Company Number: US-ABBVIE-5859107

PATIENT
  Age: 26 Year
  Sex: Female
  Weight: 38.555 kg

DRUGS (1)
  1. HUMIRA [Suspect]
     Active Substance: ADALIMUMAB
     Indication: Crohn^s disease
     Dosage: FORM STRENGTH: 80 MILLIGRAM
     Route: 058
     Dates: start: 20240712

REACTIONS (1)
  - Injection site discharge [Recovered/Resolved]

NARRATIVE: CASE EVENT DATE: 20240726
